FAERS Safety Report 20787403 (Version 2)
Quarter: 2022Q3

REPORT INFORMATION
  Report Type: Report from Study
  Country: US (occurrence: US)
  Receive Date: 20220505
  Receipt Date: 20220719
  Transmission Date: 20221027
  Serious: Yes (Hospitalization)
  Sender: FDA-Public Use
  Company Number: US-GILEAD-2022-0579304

PATIENT
  Sex: Male

DRUGS (37)
  1. AZTREONAM LYSINE [Suspect]
     Active Substance: AZTREONAM LYSINE
     Indication: Cystic fibrosis
     Dosage: UNK UNK, TID FOR 28 DAYS ON/28 DAYS OFF
     Route: 055
  2. TRIKAFTA [Concomitant]
     Active Substance: ELEXACAFTOR\IVACAFTOR\TEZACAFTOR
  3. PULMOZYME [Concomitant]
     Active Substance: DORNASE ALFA
  4. TOBRAMYCIN [Concomitant]
     Active Substance: TOBRAMYCIN
  5. TRANEXAMIC ACID [Concomitant]
     Active Substance: TRANEXAMIC ACID
  6. CREON [Concomitant]
     Active Substance: PANCRELIPASE AMYLASE\PANCRELIPASE LIPASE\PANCRELIPASE PROTEASE
  7. XYZAL ALLERGY 24HR [Concomitant]
     Active Substance: LEVOCETIRIZINE DIHYDROCHLORIDE
  8. NOVOLOG [Concomitant]
     Active Substance: INSULIN ASPART
  9. LANTUS [Concomitant]
     Active Substance: INSULIN GLARGINE
  10. LASIX [Concomitant]
     Active Substance: FUROSEMIDE
  11. ANASTROZOLE [Concomitant]
     Active Substance: ANASTROZOLE
  12. VITAMIN D3 [Concomitant]
     Active Substance: CHOLECALCIFEROL
  13. CLONAZEPAM [Concomitant]
     Active Substance: CLONAZEPAM
  14. COLISTIMETHATE SODIUM [Concomitant]
     Active Substance: COLISTIMETHATE SODIUM
  15. CEFIXIME [Concomitant]
     Active Substance: CEFIXIME
  16. EPINEPHRINE [Concomitant]
     Active Substance: EPINEPHRINE
  17. NEXIUM I.V. [Concomitant]
     Active Substance: ESOMEPRAZOLE SODIUM
  18. MOMETASONE FUROATE [Concomitant]
     Active Substance: MOMETASONE FUROATE
  19. NORCO [Concomitant]
     Active Substance: ACETAMINOPHEN\HYDROCODONE BITARTRATE
  20. CULTURELLE [Concomitant]
     Active Substance: LACTOBACILLUS RHAMNOSUS
  21. PREVACID [Concomitant]
     Active Substance: LANSOPRAZOLE
  22. SODIUM BICARBONATE [Concomitant]
     Active Substance: SODIUM BICARBONATE
  23. TADALAFIL [Concomitant]
     Active Substance: TADALAFIL
  24. SPIRIVA RESPIMAT [Concomitant]
     Active Substance: TIOTROPIUM BROMIDE
  25. URSODIOL [Concomitant]
     Active Substance: URSODIOL
  26. VANCOMYCIN [Concomitant]
     Active Substance: VANCOMYCIN
  27. RETINOL [Concomitant]
     Active Substance: RETINOL
  28. PROAIR HFA [Concomitant]
     Active Substance: ALBUTEROL SULFATE
  29. VENTOLIN HFA [Concomitant]
     Active Substance: ALBUTEROL SULFATE
  30. ALBUTEROL SULFATE [Concomitant]
     Active Substance: ALBUTEROL SULFATE
  31. AZELASTINE HYDROCHLORIDE [Concomitant]
     Active Substance: AZELASTINE HYDROCHLORIDE
  32. NYSTATIN [Concomitant]
     Active Substance: NYSTATIN
  33. MEPHYTON [Concomitant]
     Active Substance: PHYTONADIONE
  34. KLOR-CON [Concomitant]
     Active Substance: POTASSIUM CHLORIDE
  35. PROVENTIL HFA [Concomitant]
     Active Substance: ALBUTEROL SULFATE
  36. GABAPENTIN [Concomitant]
     Active Substance: GABAPENTIN
  37. NORVASC [Concomitant]
     Active Substance: AMLODIPINE BESYLATE

REACTIONS (2)
  - Haemoptysis [Unknown]
  - Weight abnormal [Unknown]
